FAERS Safety Report 9173455 (Version 1)
Quarter: 2013Q1

REPORT INFORMATION
  Report Type: Spontaneous
  Country: US (occurrence: US)
  Receive Date: 20130320
  Receipt Date: 20130320
  Transmission Date: 20140127
  Serious: No
  Sender: FDA-Public Use
  Company Number: US-MYLANLABS-2012S1025636

PATIENT
  Age: 50 Year
  Sex: Male
  Weight: 74.84 kg

DRUGS (4)
  1. ATORVASTATIN CALCIUM TABLETS [Suspect]
     Indication: BLOOD CHOLESTEROL INCREASED
     Route: 048
     Dates: start: 20121202, end: 20121206
  2. AMBIEN [Concomitant]
     Indication: INSOMNIA
  3. ESCITALOPRAM [Concomitant]
     Indication: ANXIETY
  4. OMEPRAZOLE [Concomitant]
     Indication: GASTROOESOPHAGEAL REFLUX DISEASE

REACTIONS (1)
  - Burning sensation mucosal [Recovered/Resolved]
